FAERS Safety Report 10359498 (Version 1)
Quarter: 2014Q3

REPORT INFORMATION
  Report Type: Spontaneous
  Country: US (occurrence: None)
  Receive Date: 20140801
  Receipt Date: 20140801
  Transmission Date: 20150326
  Serious: Yes (Other)
  Sender: FDA-Public Use
  Company Number: None

PATIENT
  Age: 30 Year
  Sex: Female
  Weight: 66.23 kg

DRUGS (1)
  1. ADDERALL [Suspect]
     Active Substance: AMPHETAMINE ASPARTATE\AMPHETAMINE SULFATE\DEXTROAMPHETAMINE SACCHARATE\DEXTROAMPHETAMINE SULFATE
     Indication: ATTENTION DEFICIT/HYPERACTIVITY DISORDER
     Route: 048
     Dates: start: 20140729, end: 20140730

REACTIONS (8)
  - Product quality issue [None]
  - Product substitution issue [None]
  - Sedation [None]
  - Motor dysfunction [None]
  - Fatigue [None]
  - Narcolepsy [None]
  - Balance disorder [None]
  - Product odour abnormal [None]

NARRATIVE: CASE EVENT DATE: 20140729
